FAERS Safety Report 11038104 (Version 1)
Quarter: 2015Q2

REPORT INFORMATION
  Report Type: Spontaneous
  Country: US (occurrence: None)
  Receive Date: 20150415
  Receipt Date: 20150415
  Transmission Date: 20150821
  Serious: Yes (Other)
  Sender: FDA-Public Use
  Company Number: None

PATIENT
  Age: 81 Year
  Sex: Male

DRUGS (1)
  1. XTANDI [Suspect]
     Active Substance: ENZALUTAMIDE
     Indication: PROSTATE CANCER
     Dosage: 4 X40MG DAILY
     Route: 048
     Dates: start: 20150225, end: 20150406

REACTIONS (1)
  - Prostate cancer [None]

NARRATIVE: CASE EVENT DATE: 20150406
